FAERS Safety Report 7592029-X (Version None)
Quarter: 2011Q3

REPORT INFORMATION
  Report Type: 
  Country: None (occurrence: None)
  Receive Date: 20110705
  Receipt Date: 20110705
  Transmission Date: 20111222
  Serious: Yes (Hospitalization)
  Sender: FDA-Public Use
  Company Number: None

PATIENT
  Sex: Male
  Weight: 98 kg

DRUGS (2)
  1. GEMCITABINE HYDROCHLORIDE [Suspect]
     Dosage: 4240 MG
  2. TARCEVA [Suspect]
     Dosage: 900 MG

REACTIONS (4)
  - PYREXIA [None]
  - OROPHARYNGEAL BLISTERING [None]
  - NAUSEA [None]
  - DEVICE RELATED INFECTION [None]
